FAERS Safety Report 22789793 (Version 2)
Quarter: 2024Q4

REPORT INFORMATION
  Report Type: Spontaneous
  Country: US (occurrence: US)
  Receive Date: 20230804
  Receipt Date: 20241205
  Transmission Date: 20250115
  Serious: No
  Sender: PFIZER
  Company Number: US-PFIZER INC-202300197591

PATIENT
  Age: 67 Year
  Sex: Female

DRUGS (1)
  1. IBRANCE [Suspect]
     Active Substance: PALBOCICLIB
     Indication: Breast cancer female
     Dosage: 75 MG, CYCLIC (1 TABLET BY MOUTH DAILY ON DAYS 1-21 OUT OF A 28 DAY CYCLE)
     Route: 048

REACTIONS (2)
  - Hepatic enzyme increased [Unknown]
  - Gallbladder disorder [Unknown]
